FAERS Safety Report 7483789-7 (Version None)
Quarter: 2011Q2

REPORT INFORMATION
  Report Type: 
  Country: None (occurrence: None)
  Receive Date: 20110517
  Receipt Date: 20110512
  Transmission Date: 20111010
  Serious: Yes (Death, Other)
  Sender: FDA-Public Use
  Company Number: PHHY2010MX57636

PATIENT
  Sex: Female

DRUGS (4)
  1. DIMEFOR [Concomitant]
     Indication: DIABETES MELLITUS
  2. BROTIZOLAM [Concomitant]
     Indication: SLEEP DISORDER
  3. TRITACE [Concomitant]
     Indication: HYPERTENSION
  4. STALEVO 100 [Suspect]
     Indication: PARKINSON'S DISEASE
     Dosage: (50/12.5/200) MG,  3 DF, QD
     Route: 048
     Dates: start: 20080101

REACTIONS (4)
  - ANAEMIA [None]
  - EATING DISORDER [None]
  - RESPIRATORY DISORDER [None]
  - DEPRESSION [None]
